FAERS Safety Report 10091309 (Version 2)
Quarter: 2014Q2

REPORT INFORMATION
  Report Type: Spontaneous
  Country: US (occurrence: US)
  Receive Date: 20140421
  Receipt Date: 20140421
  Transmission Date: 20141212
  Serious: No
  Sender: FDA-Public Use
  Company Number: US-GILEAD-2013-0067574

PATIENT
  Age: 57 Year
  Sex: Female

DRUGS (3)
  1. LETAIRIS [Suspect]
     Indication: INTERSTITIAL LUNG DISEASE
     Dosage: 10 MG, QD
     Dates: start: 20090817
  2. LETAIRIS [Suspect]
     Dosage: 5 MG, QD
     Route: 048
  3. OXYGEN [Concomitant]

REACTIONS (1)
  - Nasal congestion [Not Recovered/Not Resolved]
